FAERS Safety Report 16681722 (Version 1)
Quarter: 2019Q3

REPORT INFORMATION
  Report Type: Spontaneous
  Country: US (occurrence: US)
  Receive Date: 20190622
  Receipt Date: 20190622
  Transmission Date: 20191004
  Serious: Yes (Hospitalization)
  Sender: FDA-Public Use
  Company Number: None

PATIENT
  Age: 19 Year
  Sex: Male
  Weight: 57.5 kg

DRUGS (4)
  1. CISPLATIN. [Suspect]
     Active Substance: CISPLATIN
     Dates: end: 20110825
  2. CYCLOPHOSPHAMIDE. [Suspect]
     Active Substance: CYCLOPHOSPHAMIDE
     Dates: end: 20110602
  3. LOMUSTINE (CCNU) [Suspect]
     Active Substance: LOMUSTINE
     Dates: end: 20110415
  4. VINCRISTINE SULFATE. [Suspect]
     Active Substance: VINCRISTINE SULFATE
     Dates: end: 20110415

REACTIONS (5)
  - Thrombocytopenia [None]
  - Myelodysplastic syndrome [None]
  - Neutropenia [None]
  - Bone marrow failure [None]
  - Anti-platelet antibody positive [None]

NARRATIVE: CASE EVENT DATE: 20190515
